FAERS Safety Report 9337480 (Version 1)
Quarter: 2013Q2

REPORT INFORMATION
  Report Type: Spontaneous
  Country: US (occurrence: US)
  Receive Date: 20130607
  Receipt Date: 20130607
  Transmission Date: 20140414
  Serious: Yes (Other)
  Sender: FDA-Public Use
  Company Number: US-ELI_LILLY_AND_COMPANY-US201306000332

PATIENT
  Age: 57 Year
  Sex: Male
  Weight: 83.9 kg

DRUGS (2)
  1. HUMALOG LISPRO [Suspect]
     Dosage: UNK
     Route: 058
  2. HUMALOG LISPRO [Suspect]
     Dosage: 10 U, SINGLE
     Route: 058
     Dates: start: 20130529

REACTIONS (8)
  - Loss of consciousness [Unknown]
  - Cerebrovascular accident [Unknown]
  - Hypoglycaemic unconsciousness [Unknown]
  - Fatigue [Unknown]
  - Blood glucose increased [Unknown]
  - Dysarthria [Unknown]
  - Headache [Unknown]
  - Blood glucose decreased [Unknown]
